FAERS Safety Report 6123728-4 (Version None)
Quarter: 2009Q1

REPORT INFORMATION
  Report Type: 
  Country: None (occurrence: None)
  Receive Date: 20090317
  Receipt Date: 20090311
  Transmission Date: 20090719
  Serious: Yes (Death)
  Sender: FDA-Public Use
  Company Number: 2009SP005403

PATIENT
  Age: 57 Year
  Sex: Female

DRUGS (6)
  1. TEMODAL [Suspect]
     Indication: METASTASES TO CENTRAL NERVOUS SYSTEM
     Dosage: ; QD; PO
     Route: 048
     Dates: start: 20070712, end: 20070716
  2. DEXAMETHASONE [Concomitant]
  3. PRIMPERAN [Concomitant]
  4. SEGURIL [Concomitant]
  5. SEPTRIN FORTE [Concomitant]
  6. ZOFRAN [Concomitant]

REACTIONS (2)
  - PANCYTOPENIA [None]
  - RESPIRATORY FAILURE [None]
